FAERS Safety Report 7419387-0 (Version None)
Quarter: 2011Q2

REPORT INFORMATION
  Report Type: 
  Country: None (occurrence: None)
  Receive Date: 20110415
  Receipt Date: 20110405
  Transmission Date: 20111010
  Serious: Yes (Life-Threatening, Hospitalization, Other)
  Sender: FDA-Public Use
  Company Number: JP-BAYER-201015192BYL

PATIENT
  Age: 90 Year
  Sex: Female
  Weight: 40.816 kg

DRUGS (6)
  1. AMPICILLIN [Concomitant]
     Indication: PNEUMONIA
     Dosage: UNK
     Dates: start: 20101014, end: 20101021
  2. SERENACE [Concomitant]
     Indication: RESTLESSNESS
  3. CIPROXAN-I.V. [Suspect]
     Indication: PNEUMONIA
     Dosage: 600 MG (DAILY DOSE), , IV DRIP
     Route: 041
     Dates: start: 20101014, end: 20101018
  4. ROCEPHIN [Concomitant]
     Indication: PNEUMONIA
     Dosage: DAILY DOSE 2 G
     Route: 041
     Dates: start: 20101012, end: 20101014
  5. SERENACE [Concomitant]
     Indication: DELIRIUM
     Dosage: DAILY DOSE 10 MG
     Route: 042
     Dates: start: 20101014, end: 20101015
  6. SULBACTAM [Concomitant]
     Indication: PNEUMONIA
     Dosage: DAILY DOSE 3 G
     Route: 041
     Dates: start: 20101014, end: 20101021

REACTIONS (2)
  - VENTRICULAR FIBRILLATION [None]
  - ELECTROCARDIOGRAM QT PROLONGED [None]
